FAERS Safety Report 7738402-8 (Version None)
Quarter: 2011Q3

REPORT INFORMATION
  Report Type: 
  Country: None (occurrence: None)
  Receive Date: 20110908
  Receipt Date: 20110907
  Transmission Date: 20111222
  Serious: Yes (Other)
  Sender: FDA-Public Use
  Company Number: PHHY2011BG57718

PATIENT
  Sex: Female

DRUGS (3)
  1. EXJADE [Suspect]
     Indication: MYELODYSPLASTIC SYNDROME
     Dosage: 20MG/KG DAILY
     Dates: start: 20101101
  2. ELECTROLYTE SOLUTIONS [Concomitant]
  3. HEMOTRANSFUSION [Concomitant]

REACTIONS (4)
  - ARTHRALGIA [None]
  - OEDEMA [None]
  - PROTEINURIA [None]
  - PERIORBITAL OEDEMA [None]
